FAERS Safety Report 13017823 (Version 2)
Quarter: 2017Q1

REPORT INFORMATION
  Report Type: Spontaneous
  Country: US (occurrence: US)
  Receive Date: 20161212
  Receipt Date: 20170113
  Transmission Date: 20170428
  Serious: No
  Sender: FDA-Public Use
  Company Number: US-GLAXOSMITHKLINE-US2016GSK181252

PATIENT
  Sex: Female
  Weight: 63.49 kg

DRUGS (2)
  1. FLUTICASONE PROPIONATE CREAM [Suspect]
     Active Substance: FLUTICASONE PROPIONATE
     Indication: OTITIS EXTERNA
     Dosage: 1 DF, BID
     Dates: start: 201608, end: 201609
  2. FLUTICASONE NASAL SPRAY [Suspect]
     Active Substance: FLUTICASONE
     Indication: EUSTACHIAN TUBE DYSFUNCTION
     Dosage: 2 DF, QD
     Dates: start: 201107, end: 201108

REACTIONS (5)
  - Drug hypersensitivity [Unknown]
  - Adverse drug reaction [Unknown]
  - Drug intolerance [Unknown]
  - Circumstance or information capable of leading to medication error [Unknown]
  - Dizziness [Unknown]
